APPROVED DRUG PRODUCT: VANCOMYCIN HYDROCHLORIDE IN PLASTIC CONTAINER
Active Ingredient: VANCOMYCIN HYDROCHLORIDE
Strength: EQ 500MG BASE/100ML (EQ 5MG BASE/ML)
Dosage Form/Route: SOLUTION;INTRAVENOUS
Application: N050671 | Product #001
Applicant: BAXTER HEALTHCARE CORP
Approved: Apr 29, 1993 | RLD: Yes | RS: Yes | Type: RX